FAERS Safety Report 5619734-6 (Version None)
Quarter: 2008Q1

REPORT INFORMATION
  Report Type: 
  Country: None (occurrence: None)
  Receive Date: 20080208
  Receipt Date: 20071121
  Transmission Date: 20080703
  Serious: No
  Sender: FDA-Public Use
  Company Number: A0695644A

PATIENT
  Age: 20 Month
  Sex: Female

DRUGS (2)
  1. ALTABAX [Suspect]
     Dosage: 1PCT TWICE PER DAY
     Route: 061
     Dates: start: 20071120
  2. NO CONCURRENT MEDICATION [Concomitant]

REACTIONS (4)
  - ADVERSE EVENT [None]
  - CRYING [None]
  - DISCOMFORT [None]
  - SCREAMING [None]
